FAERS Safety Report 16321728 (Version 2)
Quarter: 2019Q2

REPORT INFORMATION
  Report Type: Report from Study
  Country: NL (occurrence: NL)
  Receive Date: 20190516
  Receipt Date: 20190518
  Transmission Date: 20190711
  Serious: Yes (Other)
  Sender: FDA-Public Use
  Company Number: PHHY2019NL110561

PATIENT
  Age: 55 Year
  Sex: Female

DRUGS (1)
  1. ZOMETA [Suspect]
     Active Substance: ZOLEDRONIC ACID
     Indication: PLASMA CELL MYELOMA
     Dosage: 4 MG/DL, EVERY 12 WEEKS
     Route: 042
     Dates: start: 20190214

REACTIONS (4)
  - Pulmonary embolism [Unknown]
  - Jaw disorder [Unknown]
  - Inappropriate schedule of product administration [Unknown]
  - Tooth disorder [Unknown]

NARRATIVE: CASE EVENT DATE: 20190510
